FAERS Safety Report 8554070-X (Version None)
Quarter: 2012Q3

REPORT INFORMATION
  Report Type: 
  Country: None (occurrence: None)
  Receive Date: 20120731
  Receipt Date: 20120716
  Transmission Date: 20120928
  Serious: No
  Sender: FDA-Public Use
  Company Number: US-ASTRAZENECA-2012SE49113

PATIENT
  Age: 41 Year
  Sex: Male
  Weight: 117.9 kg

DRUGS (2)
  1. NEXIUM [Suspect]
     Indication: DYSPEPSIA
     Route: 048
     Dates: start: 20070101
  2. NEXIUM [Suspect]
     Indication: BARRETT'S OESOPHAGUS
     Route: 048
     Dates: start: 20070101

REACTIONS (4)
  - VOMITING [None]
  - OFF LABEL USE [None]
  - DYSPEPSIA [None]
  - DRUG INEFFECTIVE [None]
